FAERS Safety Report 10416719 (Version 1)
Quarter: 2014Q3

REPORT INFORMATION
  Report Type: Spontaneous
  Country: US (occurrence: US)
  Receive Date: 20140828
  Receipt Date: 20140828
  Transmission Date: 20150326
  Serious: Yes (Other)
  Sender: FDA-Public Use
  Company Number: US-NAPPMUNDI-USA-2014-0116893

PATIENT
  Sex: Female

DRUGS (1)
  1. MORPHINE SULFATE EXTENDED-RELEASE [Suspect]
     Active Substance: MORPHINE SULFATE
     Indication: BACK PAIN

REACTIONS (6)
  - Spinal operation [Unknown]
  - Movement disorder [Unknown]
  - Drug abuse [Unknown]
  - Sedation [Unknown]
  - Patient-device incompatibility [Unknown]
  - Depression [Unknown]
